FAERS Safety Report 17501536 (Version 1)
Quarter: 2020Q1

REPORT INFORMATION
  Report Type: Spontaneous
  Country: NL (occurrence: NL)
  Receive Date: 20200305
  Receipt Date: 20200305
  Transmission Date: 20200409
  Serious: Yes (Hospitalization)
  Sender: FDA-Public Use
  Company Number: NL-MYLANLABS-2020M1023619

PATIENT
  Sex: Male
  Weight: 64 kg

DRUGS (3)
  1. PRIADEL                            /00033702/ [Suspect]
     Active Substance: LITHIUM CARBONATE
     Indication: BIPOLAR DISORDER
     Dosage: TABLET MET GEREGULEERDE AFGIFTE, 400 MG (MILLIGRAM), 1 KEER PER DAG,
     Dates: start: 201608
  2. DEPAKINE                           /00228501/ [Suspect]
     Active Substance: VALPROIC ACID
     Indication: BIPOLAR DISORDER
     Dosage: TABLET MET GEREGULEERDE AFGIFTE, 500 MG (MILLIGRAM), 1 KEER PER DAG, 5
     Dates: start: 20121008
  3. QUETIAPINE. [Suspect]
     Active Substance: QUETIAPINE
     Indication: PRODUCT USED FOR UNKNOWN INDICATION
     Dosage: TABLET MET GEREGULEERDE AFGIFTE, 300 MG (MILLIGRAM), 1 KEER PER DAG, 1
     Dates: start: 20181205

REACTIONS (2)
  - Weight decreased [Recovering/Resolving]
  - Dysphagia [Recovering/Resolving]
